FAERS Safety Report 18564381 (Version 1)
Quarter: 2020Q4

REPORT INFORMATION
  Report Type: Spontaneous
  Country: US (occurrence: US)
  Receive Date: 20201201
  Receipt Date: 20201201
  Transmission Date: 20210114
  Serious: Yes (Hospitalization)
  Sender: FDA-Public Use
  Company Number: US-MYLANLABS-2020M1097501

PATIENT
  Age: 60 Year
  Sex: Male

DRUGS (2)
  1. MELPHALAN. [Suspect]
     Active Substance: MELPHALAN
     Indication: BONE MARROW CONDITIONING REGIMEN
     Dosage: 140 MILLIGRAM/SQ. METER
     Route: 042
  2. LEVOTHYROXINE. [Concomitant]
     Active Substance: LEVOTHYROXINE
     Indication: HYPOTHYROIDISM
     Route: 065

REACTIONS (4)
  - Pituitary haemorrhage [Unknown]
  - Pituitary apoplexy [Recovering/Resolving]
  - Mental status changes [Recovering/Resolving]
  - Pancytopenia [Recovering/Resolving]
